FAERS Safety Report 4818940-8 (Version None)
Quarter: 2005Q4

REPORT INFORMATION
  Report Type: 
  Country: None (occurrence: None)
  Receive Date: 20051102
  Receipt Date: 20051102
  Transmission Date: 20060501
  Serious: Yes (Life-Threatening, Hospitalization, Disabling)
  Sender: FDA-Public Use
  Company Number: None

PATIENT
  Age: 80 Year
  Sex: Male
  Weight: 81.6475 kg

DRUGS (5)
  1. KETOCONAZOLE [Suspect]
     Indication: PROSTATE CANCER
     Dosage: ^HIGH DOSE^ FOR PROSTATE CA    PO
     Route: 048
  2. LISINOPRIL [Concomitant]
  3. PROTONIX [Concomitant]
  4. ZOLADEX [Concomitant]
  5. COMPAZINE [Concomitant]

REACTIONS (5)
  - CHEST X-RAY ABNORMAL [None]
  - DYSPNOEA [None]
  - HYPOXIA [None]
  - LUNG DISORDER [None]
  - LUNG INFILTRATION [None]
